FAERS Safety Report 6145531-1 (Version None)
Quarter: 2009Q2

REPORT INFORMATION
  Report Type: 
  Country: None (occurrence: None)
  Receive Date: 20090402
  Receipt Date: 20090325
  Transmission Date: 20091009
  Serious: Yes (Hospitalization)
  Sender: FDA-Public Use
  Company Number: GXKR2009IT03904

PATIENT
  Age: 4 Year
  Sex: Male
  Weight: 13 kg

DRUGS (4)
  1. ACETYLSALICYLIC ACID SRT [Suspect]
     Indication: ANTIPLATELET THERAPY
     Dosage: 3 MG/KG/DAY
  2. ACETYLSALICYLIC ACID SRT [Suspect]
     Indication: STURGE-WEBER SYNDROME
     Dosage: 3 MG/KG/DAY
  3. VALPROATE SODIUM [Concomitant]
  4. TOPIRAMATE [Concomitant]

REACTIONS (9)
  - ANAEMIA [None]
  - DEHYDRATION [None]
  - HAEMATOMA [None]
  - HEAD INJURY [None]
  - HYPERREFLEXIA [None]
  - HYPERTONIA [None]
  - HYPOTONIA [None]
  - PALLOR [None]
  - TACHYCARDIA [None]
